FAERS Safety Report 10241735 (Version 2)
Quarter: 2014Q3

REPORT INFORMATION
  Report Type: Report from Study
  Country: BR (occurrence: BR)
  Receive Date: 20140617
  Receipt Date: 20140730
  Transmission Date: 20150326
  Serious: Yes (Other)
  Sender: FDA-Public Use
  Company Number: PHHY2014BR074782

PATIENT
  Sex: Male
  Weight: 90 kg

DRUGS (1)
  1. EXELON PATCH [Suspect]
     Active Substance: RIVASTIGMINE
     Indication: DEMENTIA
     Dosage: 4.6 MG, QD ONE ADHESIVE DAILY (9MG/5CM2)
     Route: 062
     Dates: start: 201401

REACTIONS (3)
  - Mental disorder [Unknown]
  - Drug ineffective [Unknown]
  - Parkinson^s disease [Unknown]
